FAERS Safety Report 5165909-2 (Version None)
Quarter: 2006Q4

REPORT INFORMATION
  Report Type: 
  Country: None (occurrence: None)
  Receive Date: 20061128
  Receipt Date: 20061120
  Transmission Date: 20070319
  Serious: Yes (Hospitalization)
  Sender: FDA-Public Use
  Company Number: US-2006-022588

PATIENT
  Age: 28 Year
  Sex: Female
  Weight: 81.6 kg

DRUGS (1)
  1. MIRENA [Suspect]
     Indication: CONTRACEPTION
     Dosage: 20 UG/DAY, CONT, INTRA-UTERINE
     Route: 015
     Dates: start: 20060511, end: 20060601

REACTIONS (3)
  - ENDOMETRIOSIS [None]
  - IUCD COMPLICATION [None]
  - UTERINE PERFORATION [None]
